FAERS Safety Report 23148643 (Version 1)
Quarter: 2023Q4

REPORT INFORMATION
  Report Type: Spontaneous
  Country: US (occurrence: US)
  Receive Date: 20231106
  Receipt Date: 20231106
  Transmission Date: 20240110
  Serious: Yes (Other)
  Sender: FDA-Public Use
  Company Number: US-MYLANLABS-2023M1116424

PATIENT
  Age: 62 Year
  Sex: Female

DRUGS (20)
  1. ANASTROZOLE [Suspect]
     Active Substance: ANASTROZOLE
     Indication: Breast cancer female
     Dosage: 1 MILLIGRAM, QD
     Route: 048
     Dates: start: 201905
  2. ANASTROZOLE [Suspect]
     Active Substance: ANASTROZOLE
     Indication: Hormone receptor positive breast cancer
  3. LETROZOLE [Suspect]
     Active Substance: LETROZOLE
     Indication: Breast cancer female
     Dosage: 2.5 MILLIGRAM, QD
     Route: 048
     Dates: start: 201911
  4. LETROZOLE [Suspect]
     Active Substance: LETROZOLE
     Indication: Hormone receptor positive breast cancer
  5. PAROXETINE [Suspect]
     Active Substance: PAROXETINE
     Indication: Hot flush
     Dosage: 7.5 MILLIGRAM, QD
     Route: 048
     Dates: start: 202012
  6. TAMOXIFEN [Suspect]
     Active Substance: TAMOXIFEN
     Indication: Breast cancer female
     Dosage: 20 MILLIGRAM, QD
     Route: 048
  7. TAMOXIFEN [Suspect]
     Active Substance: TAMOXIFEN
     Indication: Hormone receptor positive breast cancer
  8. PAROXETINE [Suspect]
     Active Substance: PAROXETINE
     Indication: Hot flush
     Dosage: 5 MILLIGRAM, QD
     Route: 048
  9. PAROXETINE [Suspect]
     Active Substance: PAROXETINE
     Dosage: 5 MILLIGRAM, EVERY OTHER DAY FOR 2 WEEKS (DOSE REDUCED)
     Route: 048
  10. EXEMESTANE [Suspect]
     Active Substance: EXEMESTANE
     Indication: Breast cancer female
     Dosage: 25 MILLIGRAM, QD
     Route: 048
     Dates: start: 202010
  11. EXEMESTANE [Suspect]
     Active Substance: EXEMESTANE
     Indication: Hormone receptor positive breast cancer
  12. NICOTINE [Suspect]
     Active Substance: NICOTINE
     Indication: Smoking cessation therapy
     Dosage: 7 MILLIGRAM
     Route: 061
  13. NICOTINE [Suspect]
     Active Substance: NICOTINE
     Indication: Smoking cessation therapy
     Dosage: UNK
     Route: 061
  14. VARENICLINE [Suspect]
     Active Substance: VARENICLINE
     Indication: Smoking cessation therapy
     Dosage: UNK
     Route: 065
  15. NICOTINE [Suspect]
     Active Substance: NICOTINE
     Indication: Smoking cessation therapy
     Dosage: UNK
     Route: 061
  16. LISINOPRIL [Concomitant]
     Active Substance: LISINOPRIL
     Indication: Hypertension
     Dosage: 20 MILLIGRAM, QD
     Route: 048
  17. TIOTROPIUM BROMIDE [Concomitant]
     Active Substance: TIOTROPIUM BROMIDE
     Indication: Chronic obstructive pulmonary disease
     Dosage: 18 MICROGRAM, QD, INHALATIONS
     Route: 048
  18. ALBUTEROL [Concomitant]
     Active Substance: ALBUTEROL
     Indication: Chronic obstructive pulmonary disease
     Dosage: 90 MICROGRAM, PRN, 1 PUFF INHALED EVERY 4-6 H AS NEEDED, RESPIRATORY
     Route: 055
  19. ALBUTEROL\IPRATROPIUM [Concomitant]
     Active Substance: ALBUTEROL\IPRATROPIUM
     Indication: Chronic obstructive pulmonary disease
     Dosage: UNK, 0.5 MG/2.5 MG, 1 NEBULIZED AMPULE INHALED ORALLY EVERY 6 H AS NEEDED
     Route: 048
  20. FLUTICASONE PROPIONATE\SALMETEROL XINAFOATE [Concomitant]
     Active Substance: FLUTICASONE PROPIONATE\SALMETEROL XINAFOATE
     Indication: Chronic obstructive pulmonary disease
     Dosage: UNK, BID, 250 MICROG/ 50 MICROG, 1 INHALATION ORALLY TWICE DAILY
     Route: 048

REACTIONS (3)
  - Menopausal symptoms [Recovering/Resolving]
  - Drug ineffective for unapproved indication [Unknown]
  - Off label use [Unknown]
